FAERS Safety Report 5241089-X (Version None)
Quarter: 2007Q1

REPORT INFORMATION
  Report Type: 
  Country: None (occurrence: None)
  Receive Date: 20070214
  Receipt Date: 20070214
  Transmission Date: 20070707
  Serious: Yes (Hospitalization)
  Sender: FDA-Public Use
  Company Number: None

PATIENT
  Age: 80 Year
  Sex: Female
  Weight: 77.1115 kg

DRUGS (2)
  1. CELEBREX [Suspect]
     Indication: ANTIINFLAMMATORY THERAPY
     Dosage: 200 MILLIGRAMS ONCE DAILY PO
     Route: 048
  2. CELEBREX [Suspect]
     Indication: PAIN MANAGEMENT
     Dosage: 200 MILLIGRAMS ONCE DAILY PO
     Route: 048

REACTIONS (3)
  - ASTHENIA [None]
  - BACK PAIN [None]
  - URINE OUTPUT DECREASED [None]
